FAERS Safety Report 17876896 (Version 1)
Quarter: 2020Q2

REPORT INFORMATION
  Report Type: Spontaneous
  Country: US (occurrence: US)
  Receive Date: 20200609
  Receipt Date: 20200609
  Transmission Date: 20200714
  Serious: Yes (Other)
  Sender: FDA-Public Use
  Company Number: US-ELI_LILLY_AND_COMPANY-US202006002048

PATIENT
  Age: 52 Year
  Sex: Female

DRUGS (4)
  1. EMGALITY [Suspect]
     Active Substance: GALCANEZUMAB-GNLM
     Indication: MIGRAINE PROPHYLAXIS
     Dosage: 120 MG, UNKNOWN
     Route: 058
     Dates: start: 20200529
  2. TYLENOL [Concomitant]
     Active Substance: ACETAMINOPHEN
     Indication: MIGRAINE
     Dosage: 1 DOSAGE FORM, PRN
     Route: 065
  3. SUDAFED CO [Concomitant]
     Indication: BLOOD PRESSURE MEASUREMENT
     Dosage: 30 MG, DAILY
     Route: 065
  4. SUDAFED CO [Concomitant]
     Indication: MIGRAINE

REACTIONS (11)
  - Balance disorder [Unknown]
  - Underdose [Unknown]
  - Postural orthostatic tachycardia syndrome [Unknown]
  - Throat irritation [Unknown]
  - Throat tightness [Unknown]
  - Blood pressure fluctuation [Unknown]
  - Dysphonia [Unknown]
  - Presyncope [Unknown]
  - Asthenia [Unknown]
  - Dizziness [Unknown]
  - Heart rate irregular [Unknown]

NARRATIVE: CASE EVENT DATE: 20200529
